FAERS Safety Report 7217878-9 (Version None)
Quarter: 2011Q1

REPORT INFORMATION
  Report Type: 
  Country: None (occurrence: None)
  Receive Date: 20110110
  Receipt Date: 20110106
  Transmission Date: 20110831
  Serious: Yes (Hospitalization)
  Sender: FDA-Public Use
  Company Number: FR-BRISTOL-MYERS SQUIBB COMPANY-15145873

PATIENT
  Age: 73 Year
  Sex: Male

DRUGS (21)
  1. NOVOMIX [Concomitant]
     Dates: start: 20100101
  2. DAFALGAN [Suspect]
     Indication: BACK PAIN
     Dates: start: 20100409, end: 20100413
  3. THIOCOLCHICOSIDE [Suspect]
     Indication: BACK PAIN
     Route: 048
     Dates: start: 20100407, end: 20100414
  4. LOXEN [Suspect]
     Indication: HYPERTENSION
     Route: 048
     Dates: start: 20100411, end: 20100413
  5. RAMIPRIL [Concomitant]
     Dates: start: 20100101
  6. KAYEXALATE [Concomitant]
     Dates: start: 20100408, end: 20100409
  7. GLUCOPHAGE [Suspect]
     Indication: DIABETES MELLITUS
     Route: 048
     Dates: start: 20090101, end: 20100407
  8. PREVISCAN [Suspect]
     Indication: ATRIAL FIBRILLATION
     Dosage: PREVISCAN 20 MG TABS
     Route: 048
     Dates: start: 20090101, end: 20100413
  9. FORLAX [Concomitant]
     Dates: start: 20100411, end: 20100417
  10. LIPANTHYL [Suspect]
     Indication: DYSLIPIDAEMIA
     Dates: start: 20090101, end: 20100413
  11. MYSOLINE [Suspect]
     Indication: ESSENTIAL TREMOR
     Dosage: MYSOLINE 250MG TABS
     Route: 048
     Dates: start: 20090101, end: 20100413
  12. LASIX [Concomitant]
     Dates: start: 20100101
  13. MOLSIDOMINE [Concomitant]
     Dates: start: 20100101
  14. PERINDOPRIL [Suspect]
     Indication: HYPERTENSION
     Route: 048
     Dates: start: 20090101, end: 20100408
  15. TOPALGIC LP [Suspect]
     Indication: BACK PAIN
     Route: 048
     Dates: start: 20100407, end: 20100414
  16. IMOVANE [Concomitant]
     Dates: start: 20100101
  17. ISOPTIN SR [Concomitant]
  18. CREON [Concomitant]
     Dates: start: 20100101, end: 20100414
  19. DOLIPRANE [Concomitant]
     Dates: start: 20100407, end: 20100409
  20. NEXIUM [Concomitant]
  21. CITALOPRAM [Suspect]
     Indication: DEPRESSION
     Route: 048
     Dates: start: 20100410, end: 20100413

REACTIONS (4)
  - CYTOLYTIC HEPATITIS [None]
  - ASPARTATE AMINOTRANSFERASE INCREASED [None]
  - ALANINE AMINOTRANSFERASE INCREASED [None]
  - BACK PAIN [None]
